FAERS Safety Report 17362029 (Version 7)
Quarter: 2020Q1

REPORT INFORMATION
  Report Type: Spontaneous
  Country: DK (occurrence: DK)
  Receive Date: 20200203
  Receipt Date: 20200312
  Transmission Date: 20200409
  Serious: Yes (Other)
  Sender: FDA-Public Use
  Company Number: DK-PFIZER INC-2020044520

PATIENT
  Age: 61 Year
  Sex: Male

DRUGS (2)
  1. ZESSLY [Suspect]
     Active Substance: INFLIXIMAB
     Indication: CROHN^S DISEASE
     Dosage: UNK, Q2MO
     Route: 065
     Dates: start: 2019
  2. ZESSLY [Suspect]
     Active Substance: INFLIXIMAB
     Dosage: UNK
     Route: 065

REACTIONS (8)
  - Rash [Recovering/Resolving]
  - Skin erosion [Unknown]
  - Erythema [Unknown]
  - Depression [Unknown]
  - Suicidal ideation [Unknown]
  - Dyspnoea [Unknown]
  - Pain [Unknown]
  - Acne [Unknown]

NARRATIVE: CASE EVENT DATE: 20200221
